FAERS Safety Report 24788146 (Version 1)
Quarter: 2024Q4

REPORT INFORMATION
  Report Type: Spontaneous
  Country: US (occurrence: US)
  Receive Date: 20241230
  Receipt Date: 20241230
  Transmission Date: 20250115
  Serious: No
  Sender: CSL BEHRING
  Company Number: US-BEH-2024188365

PATIENT
  Sex: Female

DRUGS (16)
  1. PRIVIGEN [Suspect]
     Active Substance: HUMAN IMMUNOGLOBULIN G
     Indication: Acquired immunodeficiency syndrome
     Dosage: 30 G EVERY 4 WEEKS
     Route: 042
  2. AMLODIPINE [Concomitant]
     Active Substance: AMLODIPINE BESYLATE
     Dosage: 1 MG/ML
  3. CALCIUM [Concomitant]
     Active Substance: CALCIUM
     Dosage: 500 MG
  4. FENOFIBRATE [Concomitant]
     Active Substance: FENOFIBRATE
     Dosage: 200 MG
  5. VITAMIN D3 [Concomitant]
     Active Substance: CHOLECALCIFEROL
     Dosage: 1000 IU
  6. PREDNISONE [Concomitant]
     Active Substance: PREDNISONE
  7. BIKTARVY [Concomitant]
     Active Substance: BICTEGRAVIR SODIUM\EMTRICITABINE\TENOFOVIR ALAFENAMIDE FUMARATE
     Dosage: 50-200-2MG
  8. ESTRACE [Concomitant]
     Active Substance: ESTRADIOL
     Dosage: 2 MG
  9. GABAPENTIN [Concomitant]
     Active Substance: GABAPENTIN
     Dosage: 300 MG
  10. PAXIL [Concomitant]
     Active Substance: PAROXETINE HYDROCHLORIDE
     Dosage: 20 MG
  11. XANAX [Concomitant]
     Active Substance: ALPRAZOLAM
     Dosage: 1 MG
  12. LOSARTAN [Concomitant]
     Active Substance: LOSARTAN
     Dosage: 100 MG
  13. IBUPROFEN [Concomitant]
     Active Substance: IBUPROFEN
  14. ADVAIR HFA [Concomitant]
     Active Substance: FLUTICASONE PROPIONATE\SALMETEROL XINAFOATE
     Dosage: 250-50 MC
  15. FLONASE ALLERGY RELIEF [Concomitant]
     Active Substance: FLUTICASONE PROPIONATE
     Dosage: 50 MCG/AC
  16. ZYRTEC [Concomitant]
     Active Substance: CETIRIZINE HYDROCHLORIDE
     Dosage: 10 MG

REACTIONS (2)
  - Illness [Unknown]
  - Product dose omission issue [Unknown]
